FAERS Safety Report 9841203 (Version 1)
Quarter: 2013Q4

REPORT INFORMATION
  Report Type: Spontaneous
  Country: US (occurrence: None)
  Receive Date: 20131223
  Receipt Date: 20131223
  Transmission Date: 20140711
  Serious: Yes (Other)
  Sender: FDA-Public Use
  Company Number: 217698LEO

PATIENT
  Age: 59 Year
  Sex: Male

DRUGS (1)
  1. PICATO [Suspect]
     Indication: PRODUCT USED FOR UNKNOWN INDICATION
     Dosage: 1 TUBE ONCE A DAY, TOPICAL
     Route: 061
     Dates: start: 20120511, end: 20120514

REACTIONS (2)
  - Erythema [None]
  - Scab [None]
